FAERS Safety Report 5944393-2 (Version None)
Quarter: 2008Q4

REPORT INFORMATION
  Report Type: 
  Country: None (occurrence: None)
  Receive Date: 20081107
  Receipt Date: 20081027
  Transmission Date: 20090506
  Serious: Yes (Other)
  Sender: FDA-Public Use
  Company Number: IN-TEVA-179852ISR

PATIENT
  Age: 19 Year
  Sex: Male
  Weight: 55 kg

DRUGS (1)
  1. HYDROCHLOROTHIAZIDE [Suspect]
     Route: 048
     Dates: start: 20061014

REACTIONS (1)
  - TONIC CONVULSION [None]
